FAERS Safety Report 9694630 (Version 2)
Quarter: 2013Q4

REPORT INFORMATION
  Report Type: Spontaneous
  Country: DE (occurrence: DE)
  Receive Date: 20131119
  Receipt Date: 20131219
  Transmission Date: 20140711
  Serious: Yes (Life-Threatening, Hospitalization, Congenital Anomaly, Other)
  Sender: FDA-Public Use
  Company Number: GXKR2013DE003583

PATIENT
  Age: 1 Day
  Sex: Male
  Weight: 2.8 kg

DRUGS (7)
  1. EPIRUBICIN [Suspect]
     Indication: BREAST CANCER
     Dosage: MATERNAL DOSE: 156 [MG ]/ TWICE DURING PREGN. 14.9. AND 05.10.
     Route: 064
     Dates: start: 20120914, end: 20121005
  2. CYCLOPHOSPHAMIDE [Suspect]
     Indication: BREAST CANCER
     Dosage: MATERNAL DOSE: 1040 [MG ]/ TWICE DURING PREGN. 14.9. AND 05.10.
     Route: 064
     Dates: start: 20120914, end: 20121005
  3. LAMOTRIGINE [Suspect]
     Indication: EPILEPSY
     Dosage: MTERNAL DOSE: 300 [MG/D ]/ BEGIN OF PREGN: 2X50MG; IN THE END 2X150MG
     Route: 064
     Dates: start: 20120211, end: 20121029
  4. FOLSAEURE [Concomitant]
     Indication: PROPHYLAXIS OF NEURAL TUBE DEFECT
     Dosage: MATERNAL DOSE: 5 [MG/D ]
     Route: 064
     Dates: start: 20120211, end: 20121029
  5. FILGRASTIM [Concomitant]
     Indication: CHEMOTHERAPY
     Dosage: MATERNAL DOSE: TWICE DURING PREGN. 14.9. AND 05.10.
     Route: 064
     Dates: start: 20120914, end: 20121005
  6. DEXAMETHASONE [Concomitant]
     Indication: PROPHYLAXIS OF NAUSEA AND VOMITING
     Dosage: MATERNAL DOSE: TWICE DURING PREGN. 14.9. AND 05.10.
     Route: 064
     Dates: start: 20120914, end: 20121005
  7. ONDANSETRON [Concomitant]
     Indication: PROPHYLAXIS OF NAUSEA AND VOMITING
     Dosage: MATERNAL DOSE: TWICE DURING PREGN. 14.9. AND 05.10.
     Route: 064
     Dates: start: 20120914, end: 20121005

REACTIONS (4)
  - Hypospadias [Not Recovered/Not Resolved]
  - Pulmonary artery stenosis congenital [Unknown]
  - Atrial septal defect [Not Recovered/Not Resolved]
  - Neonatal respiratory distress syndrome [Recovered/Resolved]
